FAERS Safety Report 19473286 (Version 2)
Quarter: 2021Q3

REPORT INFORMATION
  Report Type: Spontaneous
  Country: DE (occurrence: DE)
  Receive Date: 20210629
  Receipt Date: 20210708
  Transmission Date: 20211014
  Serious: Yes (Hospitalization, Other)
  Sender: FDA-Public Use
  Company Number: DE-SAMSUNG BIOEPIS-SB-2021-15445

PATIENT
  Sex: Female

DRUGS (2)
  1. BENEPALI [Suspect]
     Active Substance: ETANERCEPT
     Indication: RHEUMATIC DISORDER
     Dosage: FREQUENCY: TWICE A WEEK EVERY MONDAY AND THURSDAY, START DATE: SINCE ONE TO TWO YEARS
     Route: 058
  2. BENEPALI [Suspect]
     Active Substance: ETANERCEPT
     Indication: PSORIASIS

REACTIONS (4)
  - Gastrointestinal wall thickening [Unknown]
  - Hypertrophic scar [Unknown]
  - Colon neoplasm [Unknown]
  - Product use in unapproved indication [Unknown]
